FAERS Safety Report 8605418 (Version 3)
Quarter: 2013Q4

REPORT INFORMATION
  Report Type: Spontaneous
  Country: US (occurrence: US)
  Receive Date: 20120608
  Receipt Date: 20131022
  Transmission Date: 20140711
  Serious: Yes (Hospitalization)
  Sender: FDA-Public Use
  Company Number: US-GLAXOSMITHKLINE-A0843269A

PATIENT
  Age: 82 Year
  Sex: Female

DRUGS (6)
  1. AVANDIA [Suspect]
     Indication: DIABETES MELLITUS
     Dosage: 4MG TWICE PER DAY
     Route: 048
     Dates: start: 20050621, end: 20061025
  2. INDERAL [Concomitant]
  3. LANOXIN [Concomitant]
  4. INSULIN [Concomitant]
  5. LOPID [Concomitant]
  6. ZETIA [Concomitant]

REACTIONS (4)
  - Myocardial infarction [Recovering/Resolving]
  - Arrhythmia [Unknown]
  - Cardiac failure congestive [Unknown]
  - Heart valve stenosis [Unknown]
